FAERS Safety Report 5869317-8 (Version None)
Quarter: 2008Q3

REPORT INFORMATION
  Report Type: 
  Country: None (occurrence: None)
  Receive Date: 20080903
  Receipt Date: 20080820
  Transmission Date: 20090109
  Serious: Yes (Life-Threatening)
  Sender: FDA-Public Use
  Company Number: JP-GENENTECH-258758

PATIENT
  Sex: Male
  Weight: 54 kg

DRUGS (6)
  1. BEVACIZUMAB [Suspect]
     Indication: COLON CANCER METASTATIC
     Dosage: 5 MG/KG, QD
     Route: 041
     Dates: start: 20070723, end: 20071005
  2. FLUOROURACIL [Concomitant]
     Indication: COLON CANCER METASTATIC
     Dates: start: 20070723, end: 20071011
  3. ISOVORIN [Concomitant]
     Indication: COLON CANCER METASTATIC
     Dates: start: 20070723, end: 20071011
  4. VITAMEDIN [Concomitant]
     Indication: DRUG USE FOR UNKNOWN INDICATION
     Dates: start: 20070806
  5. VITAMIN A [Concomitant]
     Indication: DRUG USE FOR UNKNOWN INDICATION
     Dates: start: 20070806
  6. FAD [Concomitant]
     Indication: DRUG USE FOR UNKNOWN INDICATION
     Dates: start: 20070806

REACTIONS (1)
  - HYPOKALAEMIA [None]
